FAERS Safety Report 6517773-4 (Version None)
Quarter: 2009Q4

REPORT INFORMATION
  Report Type: 
  Country: None (occurrence: None)
  Receive Date: 20091224
  Receipt Date: 20091217
  Transmission Date: 20100525
  Serious: Yes (Hospitalization)
  Sender: FDA-Public Use
  Company Number: FR-ASTRAZENECA-2009SE20706

PATIENT
  Age: 8393 Day
  Sex: Female
  Weight: 60 kg

DRUGS (2)
  1. NAROPIN [Suspect]
     Indication: ANALGESIC THERAPY
     Dosage: 11 ML AND CONTINUOUS INFUSION AT A RATE OF 10 ML PER HOUR, I.E. A TOTAL OF 44 MG IN 2 HOURS 15 MINUT
     Route: 008
     Dates: start: 20091013, end: 20091013
  2. SUFENTANIL CITRATE [Suspect]
     Indication: ANALGESIC THERAPY
     Dosage: 0.2 UG/ML AND CONTINUOUS INFUSION AT A RATE OF 10 ML PER HOUR
     Route: 008
     Dates: start: 20091013, end: 20091013

REACTIONS (2)
  - DRUG EFFECT PROLONGED [None]
  - NEUROMUSCULAR BLOCK PROLONGED [None]
